FAERS Safety Report 5876612-5 (Version None)
Quarter: 2008Q3

REPORT INFORMATION
  Report Type: 
  Country: None (occurrence: None)
  Receive Date: 20080910
  Receipt Date: 20080901
  Transmission Date: 20090109
  Serious: Yes (Hospitalization)
  Sender: FDA-Public Use
  Company Number: DE-ABBOTT-08P-062-0448413-00

PATIENT
  Sex: Male
  Weight: 105 kg

DRUGS (6)
  1. HUMIRA [Suspect]
     Indication: PSORIASIS
     Dosage: 40 MG
     Route: 058
     Dates: start: 20071221, end: 20080404
  2. HUMIRA [Suspect]
  3. DAIVOBET [Suspect]
     Indication: PSORIASIS
     Route: 061
     Dates: start: 20071221, end: 20080404
  4. METHOTREXATE [Concomitant]
     Indication: DRUG USE FOR UNKNOWN INDICATION
     Dates: start: 20060201, end: 20071213
  5. FUMADERM [Concomitant]
     Indication: DRUG USE FOR UNKNOWN INDICATION
     Dates: start: 20020101, end: 20071204
  6. COMMERCIAL HUMIRA [Concomitant]
     Indication: PSORIASIS
     Route: 058
     Dates: start: 20080429, end: 20080514

REACTIONS (1)
  - DERMATITIS EXFOLIATIVE [None]
